FAERS Safety Report 6622056-8 (Version None)
Quarter: 2010Q1

REPORT INFORMATION
  Report Type: 
  Country: None (occurrence: None)
  Receive Date: 20100223
  Receipt Date: 20091022
  Transmission Date: 20100710
  Serious: No
  Sender: FDA-Public Use
  Company Number: 8053688

PATIENT
  Sex: Male
  Weight: 104 kg

DRUGS (7)
  1. CERTOLIZUMAB PEGOL (UCB, INC) [Suspect]
     Indication: CROHN'S DISEASE
     Dosage: (SUBCUTANEOUS)
     Route: 058
     Dates: start: 20090930
  2. LEVOTHYROXINE SODIUM [Concomitant]
  3. ESTROGENS ESTERIFIED W/METHYLTESTOSTERONE [Concomitant]
  4. PREMARIN [Concomitant]
  5. CALCIUM [Concomitant]
  6. VITAMIN C [Concomitant]
  7. GLUCOSASMINE/CHONDROITIN [Concomitant]

REACTIONS (3)
  - INJECTION SITE ERYTHEMA [None]
  - INJECTION SITE RASH [None]
  - PRURITUS [None]
